FAERS Safety Report 15684149 (Version 1)
Quarter: 2018Q4

REPORT INFORMATION
  Report Type: Spontaneous
  Country: US (occurrence: US)
  Receive Date: 20181204
  Receipt Date: 20181204
  Transmission Date: 20190205
  Serious: Yes (Hospitalization, Other)
  Sender: FDA-Public Use
  Company Number: US-HIKMA PHARMACEUTICALS USA INC.-US-H14001-18-08579

PATIENT
  Age: 36 Year
  Sex: Female

DRUGS (4)
  1. OXYTOCIN. [Suspect]
     Active Substance: OXYTOCIN
     Indication: PRODUCT USED FOR UNKNOWN INDICATION
     Dosage: 30 UNITS IN 500 ML NORMAL SALINE
     Route: 065
  2. MISOPROSTOL. [Suspect]
     Active Substance: MISOPROSTOL
     Indication: UTERINE ATONY
     Route: 002
  3. LACTATED RINGERS SOLUTION [Concomitant]
     Active Substance: CALCIUM CHLORIDE\POTASSIUM CHLORIDE\SODIUM CHLORIDE\SODIUM LACTATE
     Indication: PRODUCT USED FOR UNKNOWN INDICATION
     Route: 065
  4. METHYLERGONOVINE [Suspect]
     Active Substance: METHYLERGONOVINE
     Indication: UTERINE ATONY
     Route: 030

REACTIONS (1)
  - Acute pulmonary oedema [Recovered/Resolved]
